FAERS Safety Report 4733027-0 (Version None)
Quarter: 2005Q3

REPORT INFORMATION
  Report Type: 
  Country: None (occurrence: None)
  Receive Date: 20050801
  Receipt Date: 20050715
  Transmission Date: 20060218
  Serious: Yes (Life-Threatening)
  Sender: FDA-Public Use
  Company Number: S05-UKI-02525-01

PATIENT
  Age: 45 Year
  Sex: Female

DRUGS (3)
  1. CIPRALEX (ESCITALOPRAM) [Suspect]
     Indication: DEPRESSION
     Dosage: 10 MG QD PO
     Route: 048
     Dates: start: 20030317
  2. LEVOTHYROXINE SODIUM [Concomitant]
  3. LIOTHYRONINE SODIUM [Concomitant]

REACTIONS (2)
  - ANAPHYLACTIC SHOCK [None]
  - ASTHMA [None]
